FAERS Safety Report 4805654-3 (Version None)
Quarter: 2005Q4

REPORT INFORMATION
  Report Type: 
  Country: None (occurrence: None)
  Receive Date: 20051018
  Receipt Date: 20051005
  Transmission Date: 20060501
  Serious: Yes (Other)
  Sender: FDA-Public Use
  Company Number: 2005061721

PATIENT
  Sex: Female

DRUGS (3)
  1. DEPO-PROVERA [Suspect]
     Indication: ENDOMETRIOSIS
     Dosage: 150 MG (150 MG, FIRST INJECTION), INTRAMUSCULAR; 150 MG (150 MG, LAST INJECTION), INTRAMUSCULAR
     Route: 030
     Dates: start: 20020121, end: 20020121
  2. DEPO-PROVERA [Suspect]
     Indication: ENDOMETRIOSIS
     Dosage: 150 MG (150 MG, FIRST INJECTION), INTRAMUSCULAR; 150 MG (150 MG, LAST INJECTION), INTRAMUSCULAR
     Route: 030
     Dates: start: 20050120, end: 20050120
  3. ZOLOFT [Concomitant]

REACTIONS (13)
  - AMENORRHOEA [None]
  - ATROPHIC VULVOVAGINITIS [None]
  - CERVICAL STRICTURE [None]
  - CONDITION AGGRAVATED [None]
  - DEPRESSION [None]
  - DRUG INEFFECTIVE [None]
  - FOOD CRAVING [None]
  - LIBIDO DECREASED [None]
  - OVARIAN CYST [None]
  - SERUM SEROTONIN DECREASED [None]
  - SUICIDAL IDEATION [None]
  - UTERINE LEIOMYOMA [None]
  - WEIGHT INCREASED [None]
